FAERS Safety Report 8736342 (Version 3)
Quarter: 2012Q4

REPORT INFORMATION
  Report Type: 
  Country: US (occurrence: US)
  Receive Date: 20120822
  Receipt Date: 20121024
  Transmission Date: 20130627
  Serious: Yes (Disabling, Other)
  Sender: FDA-Public Use
  Company Number: US-PFIZER INC-2012203580

PATIENT
  Age: 57 Year
  Sex: Female
  Weight: 92.97 kg

DRUGS (8)
  1. CELEBREX [Suspect]
     Indication: RHEUMATOID ARTHRITIS
     Dosage: 200 mg, 1x/day
     Route: 048
     Dates: end: 2012
  2. LYRICA [Suspect]
     Indication: FIBROMYALGIA
     Dosage: 150 mg, 2x/day
     Route: 048
  3. LISINOPRIL W/HYDROCHLOROTHIAZIDE [Concomitant]
     Dosage: 10/12.5 mg, 1x/day
  4. ZOLOFT [Concomitant]
     Dosage: 100 mg, 1x/day
  5. TIZANIDINE [Concomitant]
     Dosage: 2 mg, 3x/day
  6. HYDROCODONE W/ACETAMINOPHEN [Concomitant]
     Dosage: 10/325 mg, 3x/day
  7. LEVOTHROID [Concomitant]
     Dosage: 50 ug, 1x/day
  8. KLONOPIN [Concomitant]
     Dosage: 2 mg, UNK

REACTIONS (8)
  - Intervertebral disc protrusion [Not Recovered/Not Resolved]
  - Weight increased [Unknown]
  - Arthritis [Not Recovered/Not Resolved]
  - Feeling abnormal [Unknown]
  - Amnesia [Unknown]
  - Irritability [Unknown]
  - Panic reaction [Unknown]
  - Wrong technique in drug usage process [Unknown]
